FAERS Safety Report 7874803-5 (Version None)
Quarter: 2011Q4

REPORT INFORMATION
  Report Type: 
  Country: None (occurrence: None)
  Receive Date: 20111003
  Receipt Date: 20101115
  Transmission Date: 20120403
  Serious: Yes (Hospitalization)
  Sender: FDA-Public Use
  Company Number: 2010110054(0)

PATIENT
  Age: 43 Year
  Sex: Female

DRUGS (23)
  1. AMILORIDE (AMILORIDE HCL) [Concomitant]
  2. DOCUSATE (DOCUSATE SODIUM) [Concomitant]
  3. ALLEGRA (FEXOFENADINE HCL) [Concomitant]
  4. ACETAMINOPHEN [Concomitant]
  5. POTASSIUM CHLORIDE [Concomitant]
  6. HYDROXYZINE (HYDROXYZINE HCL) [Concomitant]
  7. LANSOPRAZOLE [Concomitant]
  8. SINGULAIR [Concomitant]
  9. CICLETANINE (CICLETANINE) [Suspect]
     Indication: PULMONARY ARTERIAL HYPERTENSION
     Dosage: 4 DOSAGE FORMS (2 DOSAGE FORMS, 2 IN 1 D), ORAL
     Route: 048
     Dates: start: 20100713
  10. DIGOXIN [Concomitant]
  11. CHLORHEXIDINE (CHLORHEXIDINE GLUCONATE) [Concomitant]
  12. CYMBALTA [Concomitant]
  13. LACTOBACILLUS ACIDOPHILUS (LACTOBACILLUS ACIDOPHILUS) [Concomitant]
  14. CARAFATE [Concomitant]
  15. MIRAPEX [Concomitant]
  16. CALCIUM WITH VITAMIN D [Concomitant]
  17. RHINOCORT [Concomitant]
  18. LUNESTA [Concomitant]
  19. MULTI-VITAMINS [Concomitant]
  20. DEMADEX [Suspect]
  21. COUMADIN [Concomitant]
  22. SPIRONOLACTONE [Concomitant]
  23. TRAMADOL HCL [Concomitant]

REACTIONS (2)
  - HYPOKALAEMIA [None]
  - FIBROCYSTIC BREAST DISEASE [None]
